FAERS Safety Report 16737369 (Version 1)
Quarter: 2019Q3

REPORT INFORMATION
  Report Type: Spontaneous
  Country: FR (occurrence: FR)
  Receive Date: 20190823
  Receipt Date: 20190823
  Transmission Date: 20191005
  Serious: Yes (Hospitalization, Congenital Anomaly, Other)
  Sender: FDA-Public Use
  Company Number: PHHY2019FR191800

PATIENT
  Sex: Male
  Weight: 3.42 kg

DRUGS (3)
  1. LAMOTRIGINE. [Suspect]
     Active Substance: LAMOTRIGINE
     Indication: FOETAL EXPOSURE DURING PREGNANCY
     Dosage: UNK
     Route: 065
     Dates: start: 20100612, end: 20110304
  2. DEPAKINE CHRONO [Suspect]
     Active Substance: VALPROATE SODIUM
     Indication: FOETAL EXPOSURE DURING PREGNANCY
     Dosage: UNK
     Route: 064
     Dates: start: 20100612, end: 20110304
  3. CLONAZEPAM. [Suspect]
     Active Substance: CLONAZEPAM
     Indication: FOETAL EXPOSURE DURING PREGNANCY
     Dosage: UNK
     Route: 065
     Dates: start: 20100612, end: 20110304

REACTIONS (45)
  - Talipes [Unknown]
  - Language disorder [Unknown]
  - Atrophy [Unknown]
  - Foetal exposure during pregnancy [Unknown]
  - Acidosis [Unknown]
  - Intellectual disability [Unknown]
  - Disturbance in attention [Unknown]
  - Dysmorphism [Unknown]
  - Nasal disorder [Unknown]
  - Abdominal distension [Unknown]
  - Meconium in amniotic fluid [Unknown]
  - Drooling [Unknown]
  - Psychomotor retardation [Unknown]
  - Intelligence test abnormal [Unknown]
  - Social avoidant behaviour [Unknown]
  - Oropharyngeal discomfort [Unknown]
  - Neonatal respiratory distress [Unknown]
  - Congenital cerebral cyst [Unknown]
  - Hypotonia neonatal [Unknown]
  - Ligament laxity [Unknown]
  - Sleep disorder [Unknown]
  - Bronchitis [Unknown]
  - Ear disorder [Unknown]
  - Somnolence [Unknown]
  - Gastrooesophageal reflux disease [Unknown]
  - Aminoaciduria [Unknown]
  - Ventricular septal defect [Unknown]
  - Hypertelorism of orbit [Unknown]
  - Joint laxity [Unknown]
  - Congenital astigmatism [Unknown]
  - Strabismus [Unknown]
  - Delayed fontanelle closure [Unknown]
  - Otitis media acute [Unknown]
  - Respiratory disorder neonatal [Unknown]
  - Bronchiolitis [Unknown]
  - Congenital myopia [Unknown]
  - Speech disorder [Unknown]
  - Balance disorder [Unknown]
  - Dysgraphia [Unknown]
  - Motor dysfunction [Unknown]
  - Growth retardation [Unknown]
  - Neonatal asphyxia [Unknown]
  - Developmental delay [Unknown]
  - Speech disorder developmental [Unknown]
  - Conjunctivitis [Unknown]

NARRATIVE: CASE EVENT DATE: 201105
